FAERS Safety Report 24758570 (Version 1)
Quarter: 2024Q4

REPORT INFORMATION
  Report Type: Spontaneous
  Country: US (occurrence: None)
  Receive Date: 20241219
  Receipt Date: 20241219
  Transmission Date: 20250115
  Serious: Yes (Hospitalization)
  Sender: Public
  Company Number: None

PATIENT
  Age: 49 Year
  Sex: Female

DRUGS (3)
  1. GAMMAPLEX [Suspect]
     Active Substance: HUMAN IMMUNOGLOBULIN G
     Indication: Chronic inflammatory demyelinating polyradiculoneuropathy
     Dosage: OTHER STRENGTH : 20GM/VL;?FREQUENCY : MONTHLY;?
     Route: 042
     Dates: start: 202406
  2. GAMMAPLEX [Suspect]
     Active Substance: HUMAN IMMUNOGLOBULIN G
     Dosage: OTHER STRENGTH : 10GM/VL ;?FREQUENCY : MONTHLY;?
     Route: 042
     Dates: start: 202406
  3. HUBER INF SET [Concomitant]

REACTIONS (6)
  - Osteomyelitis [None]
  - Peripheral swelling [None]
  - Peripheral swelling [None]
  - Pyrexia [None]
  - Pain [None]
  - Fluid retention [None]

NARRATIVE: CASE EVENT DATE: 20241214
